FAERS Safety Report 25361595 (Version 2)
Quarter: 2025Q2

REPORT INFORMATION
  Report Type: Spontaneous
  Country: JP (occurrence: JP)
  Receive Date: 20250527
  Receipt Date: 20250612
  Transmission Date: 20250717
  Serious: Yes (Hospitalization, Other)
  Sender: BRISTOL-MYERS SQUIBB COMPANY
  Company Number: JP-BRISTOL-MYERS SQUIBB COMPANY-2025-069546

PATIENT
  Age: 7 Decade

DRUGS (4)
  1. YERVOY [Suspect]
     Active Substance: IPILIMUMAB
     Indication: Renal cancer
     Route: 041
     Dates: start: 202504
  2. OPDIVO [Suspect]
     Active Substance: NIVOLUMAB
     Indication: Renal cancer
     Route: 041
     Dates: start: 202504
  3. PACLITAXEL [Concomitant]
     Active Substance: PACLITAXEL
     Indication: Product used for unknown indication
  4. CARBOPLATIN [Concomitant]
     Active Substance: CARBOPLATIN
     Indication: Product used for unknown indication

REACTIONS (1)
  - Stevens-Johnson syndrome [Recovering/Resolving]

NARRATIVE: CASE EVENT DATE: 20250501
